FAERS Safety Report 4306910-8 (Version None)
Quarter: 2004Q1

REPORT INFORMATION
  Report Type: 
  Country: None (occurrence: None)
  Receive Date: 20040227
  Receipt Date: 20040120
  Transmission Date: 20041129
  Serious: Yes (Death)
  Sender: FDA-Public Use
  Company Number: PHHO2004NZ01210

PATIENT
  Age: 48 Year
  Sex: Female

DRUGS (5)
  1. CLOZARIL [Suspect]
     Indication: SCHIZOPHRENIA
     Route: 048
     Dates: start: 19921201
  2. PAROXETINE HCL [Concomitant]
  3. TEMAZEPAM [Suspect]
  4. VALPROIC ACID [Concomitant]
  5. MORPHINE [Suspect]

REACTIONS (4)
  - BRONCHOPNEUMONIA [None]
  - DRUG LEVEL INCREASED [None]
  - DRUG SCREEN POSITIVE [None]
  - RESPIRATORY DEPRESSION [None]
